FAERS Safety Report 5828478-7 (Version None)
Quarter: 2008Q3

REPORT INFORMATION
  Report Type: 
  Country: None (occurrence: None)
  Receive Date: 20080731
  Receipt Date: 20080723
  Transmission Date: 20090109
  Serious: Yes (Other)
  Sender: FDA-Public Use
  Company Number: JP-WATSON-2008-04483

PATIENT
  Age: 28 Year
  Sex: Female

DRUGS (3)
  1. PREDNISOLONE ACETATE (WATSON LABORATORIES) [Suspect]
     Indication: VOGT-KOYANAGI-HARADA SYNDROME
     Dosage: 150 MG AND 100 MG DAILY TAPERED Q3DAYS
     Route: 042
     Dates: start: 20040701, end: 20040701
  2. PREDNISOLONE ACETATE (WATSON LABORATORIES) [Suspect]
     Dosage: 200 MG, DAILY
     Route: 042
     Dates: start: 20040702
  3. PREDNISOLONE ACETATE [Suspect]
     Indication: VOGT-KOYANAGI-HARADA SYNDROME
     Dosage: 80 MG, DAILY TAPERED
     Route: 048
     Dates: start: 20040101, end: 20050101

REACTIONS (1)
  - INTRA-UTERINE DEATH [None]
